FAERS Safety Report 22116408 (Version 1)
Quarter: 2023Q1

REPORT INFORMATION
  Report Type: Spontaneous
  Country: US (occurrence: US)
  Receive Date: 20230320
  Receipt Date: 20230320
  Transmission Date: 20230418
  Serious: No
  Sender: FDA-Public Use
  Company Number: US-SAREPTA THERAPEUTICS INC.-SRP2022-002709

PATIENT
  Age: 8 Year
  Sex: Male
  Weight: 28.8 kg

DRUGS (6)
  1. VYONDYS 53 [Suspect]
     Active Substance: GOLODIRSEN
     Indication: Duchenne muscular dystrophy
     Dosage: 800 MILLIGRAM, WEEKLY
     Route: 042
     Dates: start: 20200325, end: 20220902
  2. VYONDYS 53 [Suspect]
     Active Substance: GOLODIRSEN
     Dosage: 800 MILLIGRAM, WEEKLY
     Route: 042
     Dates: start: 20220912
  3. VYONDYS 53 [Suspect]
     Active Substance: GOLODIRSEN
     Dosage: 900 MILLIGRAM, WEEKLY
     Route: 042
     Dates: start: 20221111
  4. VITAMIN D3 [Concomitant]
     Active Substance: CHOLECALCIFEROL
     Indication: Product used for unknown indication
     Dosage: 125 MCG/ML QD
     Route: 048
  5. PREDNISOLONE [Concomitant]
     Active Substance: PREDNISOLONE
     Indication: Product used for unknown indication
     Dosage: 15MG/5ML TWICE WEEKLY RX 20ML ON SAT AND SUN
     Route: 048
  6. LISINOPRIL [Concomitant]
     Active Substance: LISINOPRIL
     Indication: Product used for unknown indication
     Dosage: 1 MILLIGRAM/ML QD
     Route: 048

REACTIONS (3)
  - Device issue [Unknown]
  - Product dose omission issue [Unknown]
  - No adverse event [Unknown]

NARRATIVE: CASE EVENT DATE: 20220909
